FAERS Safety Report 9020888 (Version 2)
Quarter: 2013Q1

REPORT INFORMATION
  Report Type: Spontaneous
  Country: TW (occurrence: TW)
  Receive Date: 20130119
  Receipt Date: 20130131
  Transmission Date: 20140127
  Serious: Yes (Hospitalization)
  Sender: FDA-Public Use
  Company Number: TW-009507513-1301TWN008799

PATIENT
  Age: 44 Year
  Sex: Male

DRUGS (6)
  1. PEG-INTRON [Suspect]
     Indication: HEPATITIS C
     Dosage: 120 MICROGRAM, QW
     Route: 058
     Dates: start: 20120809, end: 20120823
  2. ROBATROL [Suspect]
     Indication: HEPATITIS C
     Dosage: 400 MG, TID
     Route: 048
     Dates: start: 20120809, end: 20120823
  3. CTM (CHLORPHENIRAMINE MALEATE) [Concomitant]
     Indication: PRURITUS
     Dosage: 5 MG, TID
     Route: 048
     Dates: start: 20120816
  4. SEMI NAX [Concomitant]
     Indication: INSOMNIA
     Dosage: 10 MG, QN
     Route: 048
     Dates: start: 20120809
  5. XYZAL [Concomitant]
     Indication: PRURITUS
     Dosage: 5 MG, Q6H
     Route: 048
  6. SILYMARIN [Concomitant]
     Indication: HEPATITIS C
     Dosage: 150 MG, BID
     Route: 048
     Dates: start: 20120809

REACTIONS (1)
  - Psoriasis [Recovering/Resolving]
